FAERS Safety Report 5674826-0 (Version None)
Quarter: 2008Q1

REPORT INFORMATION
  Report Type: 
  Country: None (occurrence: None)
  Receive Date: 20080320
  Receipt Date: 20080313
  Transmission Date: 20080703
  Serious: Yes (Hospitalization)
  Sender: FDA-Public Use
  Company Number: CA-AVENTIS-200812355GDDC

PATIENT
  Age: 53 Year
  Sex: Female
  Weight: 69.5 kg

DRUGS (5)
  1. TAXOTERE [Suspect]
     Route: 042
     Dates: start: 20020627, end: 20021030
  2. HERCEPTIN [Suspect]
     Route: 042
     Dates: start: 20020626, end: 20021113
  3. NEUPOGEN [Concomitant]
     Indication: PROPHYLAXIS
     Dates: start: 20021102, end: 20021108
  4. ONDANSETRON [Concomitant]
     Indication: PROPHYLAXIS
     Dates: start: 20021030, end: 20021102
  5. DEXAMETHASONE TAB [Concomitant]
     Indication: PROPHYLAXIS
     Dates: start: 20021029, end: 20021031

REACTIONS (2)
  - BRADYCARDIA [None]
  - DIZZINESS [None]
